FAERS Safety Report 12823226 (Version 1)
Quarter: 2016Q4

REPORT INFORMATION
  Report Type: Spontaneous
  Country: US (occurrence: US)
  Receive Date: 20161006
  Receipt Date: 20161006
  Transmission Date: 20170207
  Serious: No
  Sender: FDA-Public Use
  Company Number: None

PATIENT
  Age: 54 Year
  Sex: Female
  Weight: 65.32 kg

DRUGS (1)
  1. CAPECITABINE 2000 MG MYLAN [Suspect]
     Active Substance: CAPECITABINE
     Indication: INTRADUCTAL PROLIFERATIVE BREAST LESION
     Route: 048

REACTIONS (2)
  - White blood cell count decreased [None]
  - Haemoglobin decreased [None]

NARRATIVE: CASE EVENT DATE: 20160926
